FAERS Safety Report 10420220 (Version 1)
Quarter: 2014Q3

REPORT INFORMATION
  Report Type: Report from Study
  Country: US (occurrence: None)
  Receive Date: 20140804
  Receipt Date: 20140804
  Transmission Date: 20150326
  Serious: Yes (Hospitalization)
  Sender: FDA-Public Use
  Company Number: 2013US008750

PATIENT
  Age: 61 Year
  Sex: Female
  Weight: 40.8 kg

DRUGS (9)
  1. NASONEX [Concomitant]
     Active Substance: MOMETASONE FUROATE
  2. GLASSIA [Suspect]
     Active Substance: .ALPHA.1-PROTEINASE INHIBITOR HUMAN
     Indication: ALPHA-1 ANTI-TRYPSIN DEFICIENCY
     Route: 042
     Dates: start: 20130408, end: 20131002
  3. ADVAIR HFA (FLUTICASONE PROPIONATE, SALMETEROL XINAFOATE)? [Concomitant]
  4. ALBUTEROL HFA (SALBUTAMOL) [Concomitant]
  5. SPIRIVA [Concomitant]
     Active Substance: TIOTROPIUM BROMIDE MONOHYDRATE
  6. GABAPENTIN (GABAPENTIN) [Concomitant]
     Active Substance: GABAPENTIN
  7. SERTRALINE [Concomitant]
     Active Substance: SERTRALINE HYDROCHLORIDE
  8. THEOPHYLLINE (THEOPHYLLINE) [Concomitant]
     Active Substance: THEOPHYLLINE
  9. OXYGEN (OXYGEN) [Concomitant]
     Active Substance: OXYGEN

REACTIONS (4)
  - Chronic obstructive pulmonary disease [None]
  - Pneumonia [None]
  - Drug ineffective [None]
  - Respiratory failure [None]

NARRATIVE: CASE EVENT DATE: 2013
